FAERS Safety Report 15180538 (Version 1)
Quarter: 2018Q3

REPORT INFORMATION
  Report Type: Spontaneous
  Country: ES (occurrence: ES)
  Receive Date: 20180723
  Receipt Date: 20180723
  Transmission Date: 20181010
  Serious: Yes (Other)
  Sender: FDA-Public Use
  Company Number: ES-SA-2018SA194487

PATIENT
  Age: 76 Year
  Sex: Male

DRUGS (3)
  1. NOVORAPID [Concomitant]
     Active Substance: INSULIN ASPART
     Indication: DIABETES MELLITUS
     Dosage: IN THE MORNING AND AT NIGHT ACCORDING TO GLYCAEMIA
  2. LANTUS [Suspect]
     Active Substance: INSULIN GLARGINE
     Indication: DIABETES MELLITUS
     Dosage: 30 IU, QD
  3. NOVOMIX [Concomitant]
     Active Substance: INSULIN ASPART

REACTIONS (5)
  - Hepatitis [Unknown]
  - Hyperglycaemia [Unknown]
  - Dizziness [Unknown]
  - Nervousness [Unknown]
  - Neoplasm malignant [Unknown]

NARRATIVE: CASE EVENT DATE: 20180710
